FAERS Safety Report 4760957-6 (Version None)
Quarter: 2005Q3

REPORT INFORMATION
  Report Type: 
  Country: None (occurrence: None)
  Receive Date: 20050901
  Receipt Date: 20050819
  Transmission Date: 20060218
  Serious: Yes (Hospitalization, Other)
  Sender: FDA-Public Use
  Company Number: 2005062973

PATIENT
  Sex: Male
  Weight: 115.2136 kg

DRUGS (19)
  1. BEXTRA [Suspect]
     Indication: ILL-DEFINED DISORDER
  2. OXYCONTIN [Suspect]
     Indication: DIABETIC NEUROPATHY
     Dosage: 60 MG
  3. DULCOLAX [Suspect]
     Indication: CONSTIPATION
  4. OXYCODONE HCL [Suspect]
     Indication: PAIN
  5. ACETYLSALICYLIC ACID SRT [Concomitant]
  6. AVANDIA [Concomitant]
  7. GLYBURIDE [Concomitant]
  8. LISINOPRIL [Concomitant]
  9. LORATADINE [Concomitant]
  10. TOPROL-XL [Concomitant]
  11. GABAPENTIN [Concomitant]
  12. HYDROCODONE (HYDROCODONE) [Concomitant]
  13. LOPRESSOR [Concomitant]
  14. MONOPRIL [Concomitant]
  15. CLARITIN [Concomitant]
  16. VITAMIN E [Concomitant]
  17. VITAMIN C (VITAMIN C) [Concomitant]
  18. PRAVACHOL [Concomitant]
  19. ALL OTHER THERAPEUTIC PRODUCTS (ALL OTHER THERAPEUTIC PRODUCTS) [Concomitant]

REACTIONS (29)
  - BACK PAIN [None]
  - BLOOD GLUCOSE INCREASED [None]
  - BLOOD KETONE BODY [None]
  - BLOOD PRESSURE INCREASED [None]
  - CONDITION AGGRAVATED [None]
  - CONDUCTION DISORDER [None]
  - CORONARY ARTERY DISEASE [None]
  - CROHN'S DISEASE [None]
  - DIVERTICULUM INTESTINAL [None]
  - DRUG INEFFECTIVE [None]
  - DYSPHAGIA [None]
  - DYSPNOEA EXERTIONAL [None]
  - GASTROINTESTINAL NECROSIS [None]
  - HEART RATE INCREASED [None]
  - HYPOKALAEMIA [None]
  - INADEQUATE ANALGESIA [None]
  - INTESTINAL ISCHAEMIA [None]
  - MYOCARDIAL INFARCTION [None]
  - OCCULT BLOOD POSITIVE [None]
  - OSTEOARTHRITIS [None]
  - PAIN IN EXTREMITY [None]
  - PERNICIOUS ANAEMIA [None]
  - PNEUMATOSIS INTESTINALIS [None]
  - RECTAL TENESMUS [None]
  - RED BLOOD CELL SEDIMENTATION RATE INCREASED [None]
  - RESTLESSNESS [None]
  - SCAR [None]
  - SMALL INTESTINAL OBSTRUCTION [None]
  - SUPRAVENTRICULAR EXTRASYSTOLES [None]
